FAERS Safety Report 20909698 (Version 2)
Quarter: 2022Q3

REPORT INFORMATION
  Report Type: Spontaneous
  Country: US (occurrence: US)
  Receive Date: 20220603
  Receipt Date: 20220817
  Transmission Date: 20221026
  Serious: Yes (Other)
  Sender: FDA-Public Use
  Company Number: US-009507513-2206USA000554

PATIENT
  Sex: Male
  Weight: 74.8 kg

DRUGS (2)
  1. TICE BCG [Suspect]
     Active Substance: BACILLUS CALMETTE-GUERIN SUBSTRAIN TICE LIVE ANTIGEN
     Indication: Bladder transitional cell carcinoma
     Dosage: 5 DOSES; WEEKLY
     Route: 043
  2. TICE BCG [Suspect]
     Active Substance: BACILLUS CALMETTE-GUERIN SUBSTRAIN TICE LIVE ANTIGEN
     Dosage: UNK, 6 TREATMENTS
     Dates: start: 2019, end: 201906

REACTIONS (3)
  - BCG related cystitis [Recovered/Resolved]
  - Bladder perforation [Unknown]
  - Quality of life decreased [Unknown]
